FAERS Safety Report 7480956-3 (Version None)
Quarter: 2011Q2

REPORT INFORMATION
  Report Type: 
  Country: None (occurrence: None)
  Receive Date: 20110512
  Receipt Date: 20110512
  Transmission Date: 20111010
  Serious: Yes (Hospitalization)
  Sender: FDA-Public Use
  Company Number: None

PATIENT
  Sex: Female
  Weight: 68.0396 kg

DRUGS (4)
  1. BONIVA [Suspect]
     Indication: OSTEOPOROSIS
     Dosage: WEEKLY
  2. BONIVA [Suspect]
     Indication: OSTEOPENIA
     Dosage: WEEKLY
  3. RECLAST [Suspect]
     Dosage: 2 YEARLY INFUSIONS
  4. FOSAMAX [Suspect]
     Dosage: WEEKLY

REACTIONS (3)
  - GROIN PAIN [None]
  - FALL [None]
  - HIP FRACTURE [None]
